FAERS Safety Report 10056706 (Version 1)
Quarter: 2014Q2

REPORT INFORMATION
  Report Type: Spontaneous
  Country: US (occurrence: None)
  Receive Date: 20140401
  Receipt Date: 20140401
  Transmission Date: 20141212
  Serious: Yes (Hospitalization)
  Sender: FDA-Public Use
  Company Number: FK201401046

PATIENT
  Age: 10 Week
  Sex: Male
  Weight: 4.8 kg

DRUGS (5)
  1. BUPIVACAINE [Suspect]
     Indication: LOCAL ANAESTHESIA
  2. DEXTROSE (GLUCOSE), LEVULOSE (FRUCTOSE), PHOSPHORIC ACID [Concomitant]
  3. SEVOFLURANE (SEVOFLURANE) [Concomitant]
  4. BALANCED SALT SOLUTION (EYE STREAM) [Concomitant]
  5. PACKED RED BLOOD CELLS (BLOOD CELLS, PACKED HUMAN) [Concomitant]

REACTIONS (9)
  - Encephalopathy [None]
  - Cerebral hypoperfusion [None]
  - Partial seizures [None]
  - Procedural complication [None]
  - Epilepsy [None]
  - Post procedural complication [None]
  - Developmental delay [None]
  - Nervous system disorder [None]
  - Cerebral infarction [None]
